FAERS Safety Report 6191079-8 (Version None)
Quarter: 2009Q2

REPORT INFORMATION
  Report Type: 
  Country: None (occurrence: None)
  Receive Date: 20090513
  Receipt Date: 20090513
  Transmission Date: 20091009
  Serious: Yes (Life-Threatening, Other)
  Sender: FDA-Public Use
  Company Number: None

PATIENT
  Sex: Male

DRUGS (2)
  1. DIGOXIN [Suspect]
     Indication: ARRHYTHMIA
     Dosage: 0.25 PER DAY
  2. DIGOXIN [Suspect]
     Indication: CARDIAC FAILURE
     Dosage: 0.25 PER DAY

REACTIONS (7)
  - ANOREXIA [None]
  - DIARRHOEA [None]
  - DIZZINESS [None]
  - GAIT DISTURBANCE [None]
  - HEART RATE DECREASED [None]
  - NAUSEA [None]
  - WEIGHT DECREASED [None]
